FAERS Safety Report 9100272 (Version 3)
Quarter: 2014Q1

REPORT INFORMATION
  Report Type: Spontaneous
  Country: US (occurrence: US)
  Receive Date: 20130214
  Receipt Date: 20140130
  Transmission Date: 20141002
  Serious: Yes (Hospitalization, Other)
  Sender: FDA-Public Use
  Company Number: US-ASTRAZENECA-2005UW10084

PATIENT
  Age: 82 Year
  Sex: Female
  Weight: 47.6 kg

DRUGS (18)
  1. TOPROL XL [Suspect]
     Indication: CARDIAC DISORDER
     Dosage: GENERIC
     Route: 048
  2. TOPROL XL [Suspect]
     Indication: CARDIAC DISORDER
     Route: 048
     Dates: start: 2008
  3. CRESTOR [Suspect]
     Indication: BLOOD CHOLESTEROL INCREASED
     Route: 048
     Dates: start: 200412, end: 20050525
  4. CRESTOR [Suspect]
     Indication: BLOOD CHOLESTEROL INCREASED
     Route: 048
     Dates: start: 20050525
  5. CRESTOR [Suspect]
     Indication: BLOOD CHOLESTEROL INCREASED
     Route: 048
     Dates: start: 200503, end: 200506
  6. LASIX [Suspect]
     Route: 065
     Dates: end: 201312
  7. MULTAQ [Suspect]
     Indication: INFECTION
     Route: 065
  8. ANOTHER DRUG IN THE SAME FAMILY AS MULTAQ [Suspect]
     Route: 065
  9. CORGARD [Concomitant]
  10. ATACAND [Concomitant]
  11. LOZOL [Concomitant]
     Dosage: EVERY OTHER DAY
  12. PRILOSEC [Concomitant]
     Route: 048
  13. DIGOXIN [Concomitant]
  14. MAGNESIUM [Concomitant]
  15. PROTONIX [Concomitant]
  16. PLAVIX [Concomitant]
  17. VITAMIN D [Concomitant]
  18. XANAX [Concomitant]
     Dosage: AT NIGHT

REACTIONS (26)
  - Gastric neoplasm [Not Recovered/Not Resolved]
  - Device lead damage [Unknown]
  - Angina pectoris [Unknown]
  - Infection [Unknown]
  - Myocardial infarction [Unknown]
  - Medical device complication [Unknown]
  - Palpitations [Unknown]
  - Cardiac failure [Unknown]
  - Pulmonary oedema [Unknown]
  - Rash generalised [Unknown]
  - Malaise [Unknown]
  - Gastric disorder [Unknown]
  - Heart rate abnormal [Recovering/Resolving]
  - Cardiac flutter [Recovering/Resolving]
  - Hypertension [Unknown]
  - Weight decreased [Unknown]
  - Reaction to drug excipients [Unknown]
  - Myalgia [Unknown]
  - Blood iron decreased [Unknown]
  - Muscular weakness [Recovered/Resolved]
  - Gait disturbance [Recovered/Resolved]
  - Pain in extremity [Recovered/Resolved]
  - Arthralgia [Unknown]
  - Abdominal discomfort [Unknown]
  - Off label use [Unknown]
  - Drug ineffective [Unknown]
